FAERS Safety Report 10930453 (Version 3)
Quarter: 2015Q4

REPORT INFORMATION
  Report Type: Spontaneous
  Country: US (occurrence: US)
  Receive Date: 20150319
  Receipt Date: 20151005
  Transmission Date: 20160304
  Serious: No
  Sender: FDA-Public Use
  Company Number: US-BAYER-2015-035591

PATIENT
  Age: 50 Year
  Sex: Female
  Weight: 80.73 kg

DRUGS (8)
  1. ALEVE [Suspect]
     Active Substance: NAPROXEN SODIUM
     Indication: PAIN
     Dosage: 2 DF, BID
     Route: 048
     Dates: start: 2013
  2. ALEVE [Suspect]
     Active Substance: NAPROXEN SODIUM
     Indication: COMPLEX REGIONAL PAIN SYNDROME
  3. FISH OIL [Concomitant]
     Active Substance: FISH OIL
  4. ALEVE [Suspect]
     Active Substance: NAPROXEN SODIUM
     Indication: LUNG NEOPLASM MALIGNANT
  5. VITAMIN D [Concomitant]
     Active Substance: CHOLECALCIFEROL
  6. BAYER LOW DOSE [Suspect]
     Active Substance: ASPIRIN
     Dosage: 1 DF, QD
     Route: 048
  7. DIMETHYL SULFOXIDE. [Concomitant]
     Active Substance: DIMETHYL SULFOXIDE
     Dosage: UNK
  8. ALEVE [Suspect]
     Active Substance: NAPROXEN SODIUM
     Indication: ARTHRALGIA

REACTIONS (4)
  - Incorrect drug administration duration [Unknown]
  - Off label use [Unknown]
  - Product use issue [Unknown]
  - Off label use [None]
